FAERS Safety Report 9694979 (Version 1)
Quarter: 2013Q4

REPORT INFORMATION
  Report Type: Report from Study
  Country: KR (occurrence: KR)
  Receive Date: 20131119
  Receipt Date: 20131119
  Transmission Date: 20140711
  Serious: Yes (Hospitalization)
  Sender: FDA-Public Use
  Company Number: KR-BRISTOL-MYERS SQUIBB COMPANY-19790260

PATIENT
  Age: 55 Year
  Sex: Female

DRUGS (5)
  1. TAXOL [Suspect]
     Indication: BREAST CANCER
     Dates: start: 20130924
  2. TRASTUZUMAB [Suspect]
     Indication: BREAST CANCER
     Dosage: DATE OF LAST DOSE OF TRASTUZUMAB 02/SEP/2013
     Route: 042
     Dates: start: 20120305
  3. ADO-TRASTUZUMAB EMTANSINE [Suspect]
     Indication: BREAST CANCER
     Dosage: TRASTUZUMAB EMTANSINE?ON 25/JAN/2012 SHE RECEIVED LAST DOSE OF TRASTUZUMAB  EMTANSINE
     Route: 042
     Dates: start: 20110613
  4. BLINDED: PERTUZUMAB [Suspect]
     Indication: BREAST CANCER
     Dosage: ON 02/SEP/2013 SHE RECEIVED LAST?DOSE OF PERRUZUMAB
     Route: 042
     Dates: start: 20110613
  5. BLINDED: PLACEBO [Suspect]
     Indication: BREAST CANCER
     Dosage: LAST DOSE ON 02/SEP/2013
     Route: 042
     Dates: start: 20110613

REACTIONS (1)
  - Drug eruption [Recovered/Resolved]
